FAERS Safety Report 21343744 (Version 2)
Quarter: 2022Q3

REPORT INFORMATION
  Report Type: Report from Study
  Country: EG (occurrence: EG)
  Receive Date: 20220916
  Receipt Date: 20220924
  Transmission Date: 20221027
  Serious: Yes (Other)
  Sender: FDA-Public Use
  Company Number: EG-NOVARTISPH-NVSC2022EG206564

PATIENT
  Age: 2 Year
  Sex: Male

DRUGS (3)
  1. OMNITROPE [Suspect]
     Active Substance: SOMATROPIN
     Indication: Osteochondrodysplasia
     Dosage: 0.3 MG, QD
     Route: 058
     Dates: start: 20210529, end: 20220730
  2. OMNITROPE [Suspect]
     Active Substance: SOMATROPIN
     Dosage: UNK
     Route: 058
     Dates: start: 20220804, end: 20220824
  3. VIDROP [Concomitant]
     Indication: Malnutrition
     Dosage: 0.5 DOSAGE FORM, QD (0.5 DROPPER) (SINCE BIRTH ONGOING)
     Route: 048

REACTIONS (10)
  - Otitis media [Recovered/Resolved]
  - Tympanic membrane perforation [Recovered/Resolved]
  - Tympanic membrane perforation [Recovering/Resolving]
  - Adenoiditis [Recovering/Resolving]
  - Breathing-related sleep disorder [Recovering/Resolving]
  - Nasopharyngitis [Recovered/Resolved]
  - Cough [Recovered/Resolved]
  - Rhinorrhoea [Recovered/Resolved]
  - Drug dose omission by device [Unknown]
  - Product use in unapproved indication [Unknown]

NARRATIVE: CASE EVENT DATE: 20220909
